FAERS Safety Report 16336849 (Version 1)
Quarter: 2019Q2

REPORT INFORMATION
  Report Type: Report from Study
  Country: GR (occurrence: GR)
  Receive Date: 20190521
  Receipt Date: 20190521
  Transmission Date: 20190711
  Serious: Yes (Hospitalization)
  Sender: FDA-Public Use
  Company Number: GR-SA-2019SA133485

PATIENT
  Age: 82 Year
  Sex: Female

DRUGS (11)
  1. T4 [Concomitant]
     Active Substance: LEVOTHYROXINE
     Dosage: UNK
  2. CALCIORAL D3 [Concomitant]
     Dosage: UNK
  3. GLUCOPHAGE [Concomitant]
     Active Substance: METFORMIN HYDROCHLORIDE
     Dosage: EVERY EVENING, UNK, QD
  4. CRESTOR [Concomitant]
     Active Substance: ROSUVASTATIN CALCIUM
     Dosage: UNK
  5. INSULIN GLARGINE [Suspect]
     Active Substance: INSULIN GLARGINE
     Indication: DIABETES MELLITUS
     Dosage: 24 U IN THE EVENING, QD
     Route: 058
  6. NOVORAPID [Concomitant]
     Active Substance: INSULIN ASPART
  7. EUTHYROX [Concomitant]
     Active Substance: LEVOTHYROXINE SODIUM
     Dosage: UNK
  8. JANUVIA [Concomitant]
     Active Substance: SITAGLIPTIN PHOSPHATE
     Dosage: EVERY NOON,UNK, QD
  9. MADOPAR [Concomitant]
     Active Substance: BENSERAZIDE HYDROCHLORIDE\LEVODOPA
     Dosage: UNK
  10. FILICINE [Concomitant]
     Dosage: UNK
  11. APIDRA [Concomitant]
     Active Substance: INSULIN GLULISINE
     Dosage: UNK

REACTIONS (5)
  - Thyroid disorder [Unknown]
  - Gait disturbance [Unknown]
  - Blood sodium decreased [Unknown]
  - Hyperglycaemia [Unknown]
  - Blood glucose fluctuation [Unknown]
